FAERS Safety Report 7399810-0 (Version None)
Quarter: 2011Q2

REPORT INFORMATION
  Report Type: 
  Country: None (occurrence: None)
  Receive Date: 20110407
  Receipt Date: 20110328
  Transmission Date: 20111010
  Serious: Yes (Other)
  Sender: FDA-Public Use
  Company Number: FR-SANOFI-AVENTIS-2011SA018400

PATIENT
  Age: 80 Year
  Sex: Female

DRUGS (5)
  1. KARDEGIC [Concomitant]
     Route: 048
  2. ZOLPIDEM [Concomitant]
     Dosage: DOSE:1 UNIT(S)
     Route: 048
  3. LORMETAZEPAM [Concomitant]
     Route: 048
     Dates: start: 20110209
  4. MULTAQ [Suspect]
     Dosage: DOSE:0.5 UNIT(S)
     Route: 048
     Dates: start: 20101221
  5. TRAMADOL [Concomitant]
     Route: 048

REACTIONS (2)
  - PARAESTHESIA [None]
  - UNDERDOSE [None]
